FAERS Safety Report 10634840 (Version 5)
Quarter: 2015Q4

REPORT INFORMATION
  Report Type: Report from Study
  Country: JP (occurrence: JP)
  Receive Date: 20141205
  Receipt Date: 20151012
  Transmission Date: 20160304
  Serious: Yes (Death, Hospitalization)
  Sender: FDA-Public Use
  Company Number: JP-PFIZER INC-2013125743

PATIENT
  Age: 59 Year
  Sex: Female
  Weight: 50.5 kg

DRUGS (4)
  1. SENNOSIDE [Concomitant]
     Active Substance: SENNOSIDES
     Dosage: 2 DF, AS NEEDED
     Route: 048
     Dates: start: 20130302
  2. MAGMITT [Concomitant]
     Active Substance: MAGNESIUM OXIDE
     Dosage: 250 MG, AS NEEDED
     Route: 048
     Dates: start: 20130305
  3. PROMAC /JPN/ [Concomitant]
     Dosage: 0.5 G, 2X/DAY
     Route: 048
     Dates: start: 20130311, end: 20130328
  4. XALKORI [Suspect]
     Active Substance: CRIZOTINIB
     Indication: NON-SMALL CELL LUNG CANCER
     Dosage: 250 MG, 2X/DAY
     Route: 048
     Dates: start: 20130226, end: 20130320

REACTIONS (2)
  - Oesophagitis [Recovering/Resolving]
  - Hepatotoxicity [Recovering/Resolving]

NARRATIVE: CASE EVENT DATE: 20130313
